FAERS Safety Report 12896250 (Version 1)
Quarter: 2016Q4

REPORT INFORMATION
  Report Type: Spontaneous
  Country: US (occurrence: US)
  Receive Date: 20161031
  Receipt Date: 20161031
  Transmission Date: 20170207
  Serious: No
  Sender: FDA-Public Use
  Company Number: US-JAZZ-2016-US-016156

PATIENT
  Sex: Female

DRUGS (46)
  1. OX BILE EXTRACT [Concomitant]
     Active Substance: BOS TAURUS BILE
  2. PROMETRIUM [Concomitant]
     Active Substance: PROGESTERONE
  3. THIAMINE. [Concomitant]
     Active Substance: THIAMINE
  4. ACIPHEX [Concomitant]
     Active Substance: RABEPRAZOLE SODIUM
  5. DIFLUCAN [Concomitant]
     Active Substance: FLUCONAZOLE
  6. EFFEXOR [Concomitant]
     Active Substance: VENLAFAXINE HYDROCHLORIDE
  7. MAGNESIUM CITRATE. [Concomitant]
     Active Substance: MAGNESIUM CITRATE
  8. METFORMIN HCL [Concomitant]
     Active Substance: METFORMIN HYDROCHLORIDE
  9. NEUROLINK [Concomitant]
  10. DAPSONE. [Concomitant]
     Active Substance: DAPSONE
  11. XYREM [Suspect]
     Active Substance: SODIUM OXYBATE
     Indication: NARCOLEPSY
     Dosage: 2.25 G, BID
     Route: 048
     Dates: start: 201107, end: 201107
  12. XYREM [Suspect]
     Active Substance: SODIUM OXYBATE
     Dosage: 3 G, BID
     Route: 048
     Dates: start: 201608
  13. BENZONATATE. [Concomitant]
     Active Substance: BENZONATATE
  14. FOLIC ACID. [Concomitant]
     Active Substance: FOLIC ACID
  15. OLIVE LEAF EXTRACT [Concomitant]
  16. TRAZODONE [Concomitant]
     Active Substance: TRAZODONE HYDROCHLORIDE
  17. METHOTREXATE. [Concomitant]
     Active Substance: METHOTREXATE
  18. SINGULAIR [Concomitant]
     Active Substance: MONTELUKAST SODIUM
  19. VITAMIN B12 [Concomitant]
     Active Substance: CYANOCOBALAMIN
  20. CYANOCOBALAMIN. [Concomitant]
     Active Substance: CYANOCOBALAMIN
  21. GLUTAGENICS [Concomitant]
  22. CHOLESTYRAMINE. [Concomitant]
     Active Substance: CHOLESTYRAMINE
  23. COENZYME Q10 [Concomitant]
     Active Substance: UBIDECARENONE
  24. MELATONIN [Concomitant]
     Active Substance: MELATONIN
  25. VITAMIN D3 [Concomitant]
     Active Substance: CHOLECALCIFEROL
  26. AZITHROMYCIN ANHYDROUS. [Concomitant]
     Active Substance: AZITHROMYCIN ANHYDROUS
  27. NACON [Concomitant]
  28. ADDERALL [Concomitant]
     Active Substance: AMPHETAMINE ASPARTATE\AMPHETAMINE SULFATE\DEXTROAMPHETAMINE SACCHARATE\DEXTROAMPHETAMINE SULFATE
  29. VITAMIN B COMPLEX [Concomitant]
     Active Substance: CYANOCOBALAMIN\DEXPANTHENOL\NIACINAMIDE\PYRIDOXINE HYDROCHLORIDE\RIBOFLAVIN 5^-PHOSPHATE SODIUM\THIAMINE HYDROCHLORIDE\VITAMIN B COMPLEX
  30. FOLTX [Concomitant]
     Active Substance: CYANOCOBALAMIN CO-57\FOLIC ACID\PYRIDOXINE HYDROCHLORIDE
  31. PSYLLIUM [Concomitant]
     Active Substance: PLANTAGO SEED
  32. TRANSFER FACTOR [Concomitant]
  33. CLINDAMYCIN. [Concomitant]
     Active Substance: CLINDAMYCIN
  34. TRETINOIN. [Concomitant]
     Active Substance: TRETINOIN
  35. PREDNISONE. [Concomitant]
     Active Substance: PREDNISONE
  36. XYREM [Suspect]
     Active Substance: SODIUM OXYBATE
     Dosage: DOSE ADJUSTMENTS
     Route: 048
     Dates: start: 201107, end: 201608
  37. VSL#3 [Concomitant]
     Active Substance: PROBIOTICS NOS
  38. ANUCORT-HC [Concomitant]
     Active Substance: HYDROCORTISONE ACETATE
  39. NASONEX [Concomitant]
     Active Substance: MOMETASONE FUROATE
  40. PROVIGIL [Concomitant]
     Active Substance: MODAFINIL
  41. IRON [Concomitant]
     Active Substance: IRON
  42. ARMOUR THYROID [Concomitant]
     Active Substance: THYROID, PORCINE
  43. CORTEF [Concomitant]
     Active Substance: HYDROCORTISONE
  44. SUCCIMER [Concomitant]
     Active Substance: SUCCIMER
  45. BEYAZ [Concomitant]
     Active Substance: DROSPIRENONE\ETHINYL ESTRADIOL\LEVOMEFOLATE CALCIUM
  46. METROCREAM [Concomitant]
     Active Substance: METRONIDAZOLE

REACTIONS (1)
  - Blood pressure increased [Recovering/Resolving]
